FAERS Safety Report 17030163 (Version 1)
Quarter: 2019Q4

REPORT INFORMATION
  Report Type: Spontaneous
  Country: RS (occurrence: RS)
  Receive Date: 20191114
  Receipt Date: 20191114
  Transmission Date: 20200122
  Serious: Yes (Other)
  Sender: FDA-Public Use
  Company Number: RS-ROCHE-2467422

PATIENT
  Age: 37 Year
  Sex: Male

DRUGS (1)
  1. SAQUINAVIR [Suspect]
     Active Substance: SAQUINAVIR
     Indication: ANTIRETROVIRAL THERAPY
     Route: 065

REACTIONS (1)
  - Staphylococcal infection [Unknown]
